FAERS Safety Report 4415611-7 (Version None)
Quarter: 2004Q2

REPORT INFORMATION
  Report Type: 
  Country: None (occurrence: None)
  Receive Date: 20040630
  Receipt Date: 20040109
  Transmission Date: 20050107
  Serious: Yes (Hospitalization, Other)
  Sender: FDA-Public Use
  Company Number: 2004001760

PATIENT
  Sex: Female

DRUGS (3)
  1. ZOLOFT [Suspect]
     Indication: DEPRESSION
  2. ALPRAZOLAM [Suspect]
     Indication: DEPRESSION
  3. PREDNISONE [Concomitant]

REACTIONS (2)
  - ASTHENIA [None]
  - DEPRESSION [None]
